FAERS Safety Report 18292657 (Version 1)
Quarter: 2020Q3

REPORT INFORMATION
  Report Type: Spontaneous
  Country: TN (occurrence: TN)
  Receive Date: 20200922
  Receipt Date: 20200922
  Transmission Date: 20201103
  Serious: Yes (Other)
  Sender: FDA-Public Use
  Company Number: TN-ALKEM LABORATORIES LIMITED-TN-ALKEM-2020-05905

PATIENT
  Age: 33 Year
  Sex: Female

DRUGS (2)
  1. PREDNISOLONE. [Suspect]
     Active Substance: PREDNISOLONE
     Indication: VOGT-KOYANAGI-HARADA DISEASE
     Dosage: 1 MILLIGRAM/KILOGRAM, QD
     Route: 048
  2. AZATHIOPRINE. [Suspect]
     Active Substance: AZATHIOPRINE
     Indication: VOGT-KOYANAGI-HARADA DISEASE
     Dosage: 2.5 MILLIGRAM/KILOGRAM, QD
     Route: 048

REACTIONS (3)
  - Retinal haemorrhage [Recovered/Resolved]
  - Retinal artery occlusion [Recovered/Resolved]
  - Cytomegalovirus chorioretinitis [Recovered/Resolved]
